FAERS Safety Report 8236872-2 (Version None)
Quarter: 2012Q1

REPORT INFORMATION
  Report Type: 
  Country: None (occurrence: None)
  Receive Date: 20120327
  Receipt Date: 20120220
  Transmission Date: 20120608
  Serious: No
  Sender: FDA-Public Use
  Company Number: US-GLAXOSMITHKLINE-A0966557A

PATIENT
  Age: 37 Year
  Sex: Male

DRUGS (4)
  1. VIMPAT [Concomitant]
  2. RISPERIDONE [Concomitant]
  3. KEPPRA [Concomitant]
  4. LAMICTAL [Suspect]
     Indication: EPILEPSY
     Dosage: 2TAB PER DAY
     Route: 048
     Dates: start: 20111011

REACTIONS (4)
  - GAIT DISTURBANCE [None]
  - NAUSEA [None]
  - ACCIDENTAL OVERDOSE [None]
  - PAIN [None]
